FAERS Safety Report 10064421 (Version 2)
Quarter: 2014Q2

REPORT INFORMATION
  Report Type: Spontaneous
  Country: US (occurrence: US)
  Receive Date: 20140408
  Receipt Date: 20140414
  Transmission Date: 20141212
  Serious: Yes (Other)
  Sender: FDA-Public Use
  Company Number: US-DRREDDYS-USA/USA/14/0039453

PATIENT
  Age: 55 Year
  Sex: Female
  Weight: 71.21 kg

DRUGS (1)
  1. FAMOTIDINE 10 MG OTC [Suspect]
     Indication: GASTROOESOPHAGEAL REFLUX DISEASE
     Route: 065
     Dates: start: 20100120, end: 20140225

REACTIONS (5)
  - Platelet count decreased [Unknown]
  - Abdominal neoplasm [Unknown]
  - Tumour pain [Unknown]
  - Weight decreased [Unknown]
  - Extra dose administered [Unknown]
